FAERS Safety Report 24794500 (Version 1)
Quarter: 2024Q4

REPORT INFORMATION
  Report Type: Spontaneous
  Country: JP (occurrence: JP)
  Receive Date: 20241231
  Receipt Date: 20241231
  Transmission Date: 20250114
  Serious: Yes (Other)
  Sender: ALEXION PHARMACEUTICALS
  Company Number: JP-ASTRAZENECA-240147001_013120_P_1

PATIENT

DRUGS (2)
  1. DURVALUMAB [Suspect]
     Active Substance: DURVALUMAB
     Dosage: DOSE UNKNOWN
  2. TREMELIMUMAB [Suspect]
     Active Substance: TREMELIMUMAB
     Dosage: DOSE UNKNOWN

REACTIONS (1)
  - Malignant neoplasm progression [Unknown]
